FAERS Safety Report 19061887 (Version 1)
Quarter: 2021Q1

REPORT INFORMATION
  Report Type: Report from Study
  Country: US (occurrence: US)
  Receive Date: 20210326
  Receipt Date: 20210326
  Transmission Date: 20210420
  Serious: Yes (Other)
  Sender: FDA-Public Use
  Company Number: US-TAKEDA-2021TUS018055

PATIENT
  Sex: Female

DRUGS (1)
  1. 555 (PRUCALOPRIDE) [Suspect]
     Active Substance: PRUCALOPRIDE
     Indication: CONSTIPATION
     Dosage: .25 MILLIGRAM, PRN
     Route: 065

REACTIONS (3)
  - Frequent bowel movements [Unknown]
  - Impaired gastric emptying [Unknown]
  - Incontinence [Unknown]
